FAERS Safety Report 25868853 (Version 1)
Quarter: 2025Q4

REPORT INFORMATION
  Report Type: Spontaneous
  Country: EU (occurrence: EU)
  Receive Date: 20251001
  Receipt Date: 20251001
  Transmission Date: 20260118
  Serious: Yes (Other)
  Sender: REGENERON
  Company Number: EU-BAYER-2025A128892

PATIENT
  Age: 65 Year
  Sex: Female

DRUGS (1)
  1. EYLEA HD [Suspect]
     Active Substance: AFLIBERCEPT
     Indication: Product used for unknown indication
     Dosage: 8 MG/0.07 ML, 114.3 MG/ML
     Route: 031
     Dates: start: 20250919

REACTIONS (6)
  - Visual acuity reduced [Unknown]
  - Anterior chamber inflammation [Unknown]
  - Endophthalmitis [Unknown]
  - Eye pain [Recovered/Resolved]
  - Anterior chamber flare [Unknown]
  - Eye inflammation [Unknown]

NARRATIVE: CASE EVENT DATE: 20250922
